FAERS Safety Report 7536216 (Version 4)
Quarter: 2013Q1

REPORT INFORMATION
  Report Type: Spontaneous
  Country: US (occurrence: US)
  Receive Date: 20100811
  Receipt Date: 20130201
  Transmission Date: 20140127
  Serious: Yes (Hospitalization)
  Sender: FDA-Public Use
  Company Number: US-BIOGENIDEC-2010BI026769

PATIENT
  Age: 49 Year
  Sex: Female

DRUGS (5)
  1. AVONEX [Suspect]
     Indication: MULTIPLE SCLEROSIS
     Route: 030
     Dates: start: 20031007, end: 20040331
  2. AVONEX [Suspect]
     Indication: MULTIPLE SCLEROSIS
     Route: 030
     Dates: start: 20090117, end: 201212
  3. AVONEX [Suspect]
     Indication: MULTIPLE SCLEROSIS
     Route: 030
     Dates: start: 201212
  4. PROVIGIL [Concomitant]
     Indication: ASTHENIA
  5. PERCOCET [Concomitant]
     Indication: INTERVERTEBRAL DISC PROTRUSION

REACTIONS (2)
  - Wound infection [Not Recovered/Not Resolved]
  - Osteomyelitis viral [Recovered/Resolved]
